FAERS Safety Report 7091816-4 (Version None)
Quarter: 2010Q4

REPORT INFORMATION
  Report Type: 
  Country: None (occurrence: None)
  Receive Date: 20101109
  Receipt Date: 20101102
  Transmission Date: 20110411
  Serious: Yes (Death, Hospitalization)
  Sender: FDA-Public Use
  Company Number: DE-WATSON-2010-14566

PATIENT
  Age: 70 Year
  Sex: Male

DRUGS (6)
  1. CIPROFLOXACIN HCL [Suspect]
     Indication: SEPSIS
     Dosage: UNK
  2. IMIPENEM [Suspect]
     Indication: SEPSIS
     Dosage: UNK
  3. CILASTATIN [Suspect]
     Indication: SEPSIS
     Dosage: UNK
  4. LINEZOLID [Suspect]
     Indication: SEPSIS
     Dosage: UNK
  5. PIPERACILLIN [Suspect]
     Indication: SEPSIS
     Dosage: UNK
  6. TAZOBACTAM [Suspect]
     Indication: SEPSIS
     Dosage: UNK

REACTIONS (8)
  - ARTERIAL RUPTURE [None]
  - CARDITIS [None]
  - DRUG INEFFECTIVE [None]
  - HEART VALVE INCOMPETENCE [None]
  - PERICARDIAL EFFUSION [None]
  - PNEUMONIA [None]
  - PULMONARY VALVE DISEASE [None]
  - RENAL FAILURE [None]
